FAERS Safety Report 24224904 (Version 1)
Quarter: 2024Q3

REPORT INFORMATION
  Report Type: Spontaneous
  Country: BR (occurrence: BR)
  Receive Date: 20240819
  Receipt Date: 20240819
  Transmission Date: 20241017
  Serious: Yes (Other)
  Sender: JOHNSON AND JOHNSON
  Company Number: BR-JNJFOC-20240839116

PATIENT
  Age: 57 Year
  Sex: Male

DRUGS (5)
  1. GOLIMUMAB [Suspect]
     Active Substance: GOLIMUMAB
     Indication: Rheumatoid arthritis
     Route: 065
  2. GOLIMUMAB [Suspect]
     Active Substance: GOLIMUMAB
     Route: 041
     Dates: start: 202012
  3. GOLIMUMAB [Suspect]
     Active Substance: GOLIMUMAB
  4. PREDNISONE [Concomitant]
     Active Substance: PREDNISONE
     Dosage: 15MG, 5MG,
  5. METHOTREXATE [Concomitant]
     Active Substance: METHOTREXATE

REACTIONS (7)
  - Tuberculosis [Unknown]
  - Synovitis [Unknown]
  - Rheumatoid nodule [Unknown]
  - Bone erosion [Unknown]
  - Blood cholesterol increased [Unknown]
  - Exercise lack of [Unknown]
  - Hypertension [Unknown]

NARRATIVE: CASE EVENT DATE: 20201201
